FAERS Safety Report 4906438-8 (Version None)
Quarter: 2006Q1

REPORT INFORMATION
  Report Type: 
  Country: None (occurrence: None)
  Receive Date: 20060209
  Receipt Date: 20050812
  Transmission Date: 20060701
  Serious: Yes (Death, Life-Threatening, Hospitalization, Other)
  Sender: FDA-Public Use
  Company Number: US-BRISTOL-MYERS SQUIBB COMPANY-13075544

PATIENT
  Age: 76 Year
  Sex: Male
  Weight: 70 kg

DRUGS (14)
  1. CETUXIMAB [Suspect]
     Indication: OESOPHAGEAL CARCINOMA
     Dosage: HELD 05-AUG-2005. WEEKS 1-9, WEEKS 15-44. RESUMED THERAPY 12-AUG-2005.  HAD TREATMENT 19-AUG-2005.
     Route: 042
     Dates: start: 20050729, end: 20050729
  2. CISPLATIN [Suspect]
     Indication: OESOPHAGEAL CARCINOMA
     Dosage: WEEKS 2, 3, 5,8.  HELD (DATE NOT REPORTED). RESUMED 26-AUG-2005.
     Route: 042
     Dates: start: 20050805, end: 20050805
  3. IRINOTECAN HCL [Suspect]
     Indication: OESOPHAGEAL CARCINOMA
     Dosage: WEEKS 2, 3, 5, 8.  HELD (DATE NOT REPORTED). RESUMED 26-AUG-2005/DOSE REDUCED TO 50 MG/M2.
     Route: 042
     Dates: start: 20050805, end: 20050805
  4. RADIATION THERAPY [Suspect]
     Indication: OESOPHAGEAL CARCINOMA
     Dosage: DAY (1-5) WEEK 2-7.  180 GCY.  HELD (DATE NOT REPORTED). RESUMED 18-AUG-2005.
     Dates: start: 20050101
  5. ACETAMINOPHEN [Concomitant]
  6. CLEOCIN [Concomitant]
  7. COMPAZINE [Concomitant]
  8. DEXAMETHASONE [Concomitant]
  9. FLUCONAZOLE [Concomitant]
  10. GLUTAMINE [Concomitant]
  11. LEVAQUIN [Concomitant]
  12. LIDOCAINE [Concomitant]
  13. LORAZEPAM [Concomitant]
  14. OSMOLITE [Concomitant]

REACTIONS (23)
  - ASPERGILLOSIS [None]
  - ASTHENIA [None]
  - ATRIAL FIBRILLATION [None]
  - DEHYDRATION [None]
  - DIARRHOEA [None]
  - DYSPHAGIA [None]
  - FATIGUE [None]
  - FUNGAL SEPSIS [None]
  - HYPERNATRAEMIA [None]
  - HYPOTENSION [None]
  - LETHARGY [None]
  - LEUKOPENIA [None]
  - MULTI-ORGAN FAILURE [None]
  - NEUTROPENIA [None]
  - OESOPHAGITIS [None]
  - PNEUMONIA ASPERGILLUS [None]
  - PNEUMONIA ASPIRATION [None]
  - RASH [None]
  - RENAL FAILURE [None]
  - RESPIRATORY FAILURE [None]
  - SEPSIS [None]
  - SOMNOLENCE [None]
  - WEIGHT DECREASED [None]
